FAERS Safety Report 15658585 (Version 1)
Quarter: 2018Q4

REPORT INFORMATION
  Report Type: Spontaneous
  Country: ES (occurrence: ES)
  Receive Date: 20181126
  Receipt Date: 20181126
  Transmission Date: 20190205
  Serious: Yes (Death)
  Sender: FDA-Public Use
  Company Number: ES-EISAI MEDICAL RESEARCH-EC-2018-035192

PATIENT
  Age: 40 Year
  Sex: Male

DRUGS (2)
  1. LENVIMA [Suspect]
     Active Substance: LENVATINIB
     Route: 048
     Dates: start: 20180115
  2. LENVIMA [Suspect]
     Active Substance: LENVATINIB
     Indication: CHOLANGIOCARCINOMA
     Route: 048
     Dates: start: 20171023, end: 20180114

REACTIONS (3)
  - Hypertension [Unknown]
  - Product use in unapproved indication [Fatal]
  - Malignant neoplasm progression [Fatal]

NARRATIVE: CASE EVENT DATE: 201801
